FAERS Safety Report 14755277 (Version 1)
Quarter: 2018Q2

REPORT INFORMATION
  Report Type: Spontaneous
  Country: GB (occurrence: GB)
  Receive Date: 20180413
  Receipt Date: 20180413
  Transmission Date: 20180711
  Serious: Yes (Hospitalization, Other)
  Sender: FDA-Public Use
  Company Number: GB-TEVA-2018-GB-881366

PATIENT
  Age: 52 Year
  Sex: Female

DRUGS (1)
  1. NITROFURANTOIN. [Suspect]
     Active Substance: NITROFURANTOIN
     Route: 048

REACTIONS (3)
  - Pleural effusion [Unknown]
  - Pulmonary toxicity [Recovering/Resolving]
  - Dyspnoea [Unknown]
